FAERS Safety Report 11272041 (Version 1)
Quarter: 2015Q3

REPORT INFORMATION
  Report Type: Spontaneous
  Country: US (occurrence: None)
  Receive Date: 20150713
  Receipt Date: 20150713
  Transmission Date: 20151125
  Serious: Yes (Hospitalization)
  Sender: FDA-Public Use
  Company Number: None

PATIENT
  Age: 43 Year
  Sex: Female
  Weight: 57.61 kg

DRUGS (6)
  1. MARINOL [Concomitant]
     Active Substance: DRONABINOL
  2. CYCLOBENAZPRINE [Concomitant]
     Active Substance: CYCLOBENZAPRINE
  3. TARCEVA [Suspect]
     Active Substance: ERLOTINIB HYDROCHLORIDE
     Indication: LUNG NEOPLASM MALIGNANT
     Route: 048
     Dates: start: 20150603
  4. VITAMIN D [Concomitant]
     Active Substance: CHOLECALCIFEROL
  5. MORPHINE SULFATE. [Concomitant]
     Active Substance: MORPHINE SULFATE
  6. CARAFATE [Concomitant]
     Active Substance: SUCRALFATE

REACTIONS (6)
  - Frequent bowel movements [None]
  - Skin disorder [None]
  - Arthralgia [None]
  - Diarrhoea [None]
  - Pneumonia [None]
  - Rash [None]

NARRATIVE: CASE EVENT DATE: 20150619
